FAERS Safety Report 10039397 (Version 2)
Quarter: 2014Q1

REPORT INFORMATION
  Report Type: Report from Study
  Country: KE (occurrence: KE)
  Receive Date: 20140326
  Receipt Date: 20140326
  Transmission Date: 20141002
  Serious: Yes (Death, Life-Threatening, Other)
  Sender: FDA-Public Use
  Company Number: PHHY2014KE031031

PATIENT
  Age: 32 Year
  Sex: Male
  Weight: 71 kg

DRUGS (2)
  1. GLIVEC [Suspect]
     Indication: CHRONIC MYELOID LEUKAEMIA
     Dosage: 400 MG, QD
     Route: 048
     Dates: start: 20110424, end: 20140205
  2. AUGMENTIN [Suspect]
     Indication: RESPIRATORY TRACT INFECTION
     Dosage: 625 MG, BID
     Route: 048
     Dates: start: 20140301

REACTIONS (6)
  - Asphyxia [Fatal]
  - Thrombocytopenia [Fatal]
  - Local swelling [Fatal]
  - Lymphadenopathy [Fatal]
  - Blast crisis in myelogenous leukaemia [Fatal]
  - Respiratory tract infection [Unknown]
